FAERS Safety Report 19817902 (Version 1)
Quarter: 2021Q3

REPORT INFORMATION
  Report Type: Spontaneous
  Country: GB (occurrence: IT)
  Receive Date: 20210910
  Receipt Date: 20210910
  Transmission Date: 20211014
  Serious: Yes (Hospitalization)
  Sender: FDA-Public Use
  Company Number: IT-PERRIGO-21IT012176

PATIENT
  Age: 20 Year
  Sex: Female

DRUGS (2)
  1. ACETAMINOPHEN. [Suspect]
     Active Substance: ACETAMINOPHEN
     Indication: ARTHRALGIA
     Dosage: 5 TO 6 G, QD
     Route: 048
  2. ACETAMINOPHEN. [Suspect]
     Active Substance: ACETAMINOPHEN
     Indication: PYREXIA
     Dosage: 1 TO 2 G, QD
     Route: 048

REACTIONS (3)
  - Transaminases increased [Recovering/Resolving]
  - Acute hepatic failure [Recovering/Resolving]
  - Overdose [Recovered/Resolved]
